FAERS Safety Report 6208562-9 (Version None)
Quarter: 2009Q2

REPORT INFORMATION
  Report Type: 
  Country: None (occurrence: None)
  Receive Date: 20090529
  Receipt Date: 20090518
  Transmission Date: 20091009
  Serious: Yes (Hospitalization)
  Sender: FDA-Public Use
  Company Number: FR-PFIZER INC-2009219108

PATIENT
  Age: 20 Year

DRUGS (9)
  1. ADRIBLASTIN [Suspect]
     Indication: BONE SARCOMA
     Dosage: 104 MG DAILY
     Route: 042
     Dates: start: 20090401, end: 20090401
  2. ZOMETA [Suspect]
     Indication: BONE SARCOMA
     Dosage: UNK
     Route: 042
     Dates: start: 20090408
  3. LYRICA [Concomitant]
     Indication: PAIN
     Dosage: UNK
     Dates: start: 20090327
  4. CISPLATIN [Concomitant]
     Indication: BONE SARCOMA
     Dosage: 174 MG DAILY
     Dates: start: 20090401
  5. HOLOXAN [Concomitant]
     Indication: BONE SARCOMA
     Dosage: 10.415 G DAILY
     Dates: start: 20090402, end: 20090403
  6. CALCIUM [Concomitant]
     Dosage: UNK
  7. VITAMIN D [Concomitant]
  8. FORLAX [Concomitant]
     Indication: CONSTIPATION
     Dosage: UNK
     Dates: start: 20090327
  9. CEFTRIAXONE [Concomitant]
     Dosage: UNK
     Dates: start: 20090409, end: 20090415

REACTIONS (1)
  - PULMONARY EMBOLISM [None]
